FAERS Safety Report 16980841 (Version 1)
Quarter: 2019Q4

REPORT INFORMATION
  Report Type: Spontaneous
  Country: FR (occurrence: FR)
  Receive Date: 20191031
  Receipt Date: 20191031
  Transmission Date: 20200122
  Serious: Yes (Other)
  Sender: FDA-Public Use
  Company Number: FR-ALLERGAN-1943574US

PATIENT
  Sex: Female

DRUGS (1)
  1. OZURDEX [Suspect]
     Active Substance: DEXAMETHASONE
     Indication: MACULAR OEDEMA
     Dosage: 0.7 MG, SINGLE
     Route: 031
     Dates: start: 20190805, end: 20190805

REACTIONS (5)
  - Eye disorder [Recovered/Resolved]
  - Foreign body in eye [Recovered/Resolved]
  - Toxic anterior segment syndrome [Unknown]
  - Visual acuity reduced [Recovered/Resolved]
  - Anterior chamber flare [Recovered/Resolved]

NARRATIVE: CASE EVENT DATE: 20190809
